FAERS Safety Report 6370836-9 (Version None)
Quarter: 2009Q3

REPORT INFORMATION
  Report Type: 
  Country: None (occurrence: None)
  Receive Date: 20090923
  Receipt Date: 20070606
  Transmission Date: 20100115
  Serious: No
  Sender: FDA-Public Use
  Company Number: US-ASTRAZENECA-2006UW24481

PATIENT
  Age: 23298 Day
  Sex: Male
  Weight: 61.2 kg

DRUGS (16)
  1. SEROQUEL [Suspect]
     Indication: BIPOLAR DISORDER
     Route: 048
     Dates: start: 20031101
  2. SEROQUEL [Suspect]
     Indication: SLEEP DISORDER
     Route: 048
     Dates: start: 20031101
  3. SEROQUEL [Suspect]
     Dosage: 25 MG - 300 MG
     Route: 048
     Dates: start: 20041029
  4. SEROQUEL [Suspect]
     Dosage: 25 MG - 300 MG
     Route: 048
     Dates: start: 20041029
  5. CYMBALTA [Concomitant]
     Dates: start: 20041029
  6. ZYPREXA [Concomitant]
  7. ATIVAN [Concomitant]
     Indication: SLEEP DISORDER
     Dosage: 1 MG - 2 MG
     Dates: start: 20041029
  8. TRAZODONE [Concomitant]
     Indication: SLEEP DISORDER
     Dates: start: 20041031
  9. RISPERDAL [Concomitant]
     Indication: ANXIETY
     Dosage: 1 MG - 2 MG
     Dates: start: 20041029
  10. RISPERDAL [Concomitant]
     Indication: SLEEP DISORDER
     Dosage: 1 MG - 2 MG
     Dates: start: 20041029
  11. TYLENOL (CAPLET) [Concomitant]
     Indication: PAIN
     Dosage: 300 MG - 650 MG
     Dates: start: 19960626
  12. ZOCOR [Concomitant]
     Dates: start: 20041029
  13. LAMICTAL [Concomitant]
     Dates: start: 20041029
  14. VENLAFAXINE [Concomitant]
     Dates: start: 20041029
  15. CARDURA [Concomitant]
     Dosage: 2 MG - 5 MG
     Dates: start: 20020214
  16. MEVACOR [Concomitant]
     Dates: start: 20050629

REACTIONS (2)
  - HYPERGLYCAEMIA [None]
  - NEUROPATHY PERIPHERAL [None]
